FAERS Safety Report 20375425 (Version 1)
Quarter: 2022Q1

REPORT INFORMATION
  Report Type: Report from Study
  Country: JP (occurrence: JP)
  Receive Date: 20220125
  Receipt Date: 20220125
  Transmission Date: 20220423
  Serious: Yes (Other)
  Sender: FDA-Public Use
  Company Number: JP-OTSUKA-2021_013366

PATIENT
  Age: 53 Year
  Sex: Female
  Weight: 78 kg

DRUGS (9)
  1. TOLVAPTAN [Suspect]
     Active Substance: TOLVAPTAN
     Indication: Congenital cystic kidney disease
     Dosage: 120MG/DAY, DIVIDED 2 DOSES (EACH DOSE UNKNOWN)
     Route: 048
     Dates: start: 20160429
  2. TOLVAPTAN [Suspect]
     Active Substance: TOLVAPTAN
     Dosage: 60MG/DAY, DIVIDED 2 DOSES (EACH DOSE UNKNOWN)
     Route: 048
     Dates: start: 20150727, end: 20150729
  3. TOLVAPTAN [Suspect]
     Active Substance: TOLVAPTAN
     Dosage: 45MG/DAY, DIVIDED 2 DOSES (EACH DOSE UNKNOWN)
     Route: 048
     Dates: start: 20150730, end: 20151217
  4. TOLVAPTAN [Suspect]
     Active Substance: TOLVAPTAN
     Dosage: 60MG/DAY, DIVIDED 2 DOSES (EACH DOSE UNKNOWN)
     Route: 048
     Dates: start: 20151218, end: 20160120
  5. TOLVAPTAN [Suspect]
     Active Substance: TOLVAPTAN
     Dosage: 90MG/DAY, DIVIDED 2 DOSES (EACH DOSE UNKNOWN)
     Route: 048
     Dates: start: 20160121, end: 20160428
  6. LOSARTAN POTASSIUM [Concomitant]
     Active Substance: LOSARTAN POTASSIUM
     Indication: Product used for unknown indication
     Dosage: 50 MG, QD(USE LOSARTAN AND OLMETEC AS NEEDED BASIS))
     Route: 048
     Dates: start: 201501, end: 20190425
  7. LOSARTAN POTASSIUM [Concomitant]
     Active Substance: LOSARTAN POTASSIUM
     Dosage: 50 MG, QD (SINGLE ADMINISTRATION)
     Route: 048
     Dates: start: 20190425
  8. NIFEDIPINE [Concomitant]
     Active Substance: NIFEDIPINE
     Indication: Product used for unknown indication
     Dosage: 20 MG, QD
     Route: 048
     Dates: start: 20181122, end: 20190725
  9. NIFEDIPINE [Concomitant]
     Active Substance: NIFEDIPINE
     Dosage: 20 MG, QD
     Route: 048
     Dates: start: 20191017

REACTIONS (2)
  - Hyponatraemia [Recovered/Resolved]
  - Polyuria [Recovering/Resolving]

NARRATIVE: CASE EVENT DATE: 20200820
